FAERS Safety Report 23340085 (Version 1)
Quarter: 2023Q4

REPORT INFORMATION
  Report Type: Spontaneous
  Country: CN (occurrence: CN)
  Receive Date: 20231227
  Receipt Date: 20231227
  Transmission Date: 20240110
  Serious: Yes (Other)
  Sender: FDA-Public Use
  Company Number: None

PATIENT
  Age: 33 Year
  Sex: Male
  Weight: 83 kg

DRUGS (6)
  1. IFOSFAMIDE [Suspect]
     Active Substance: IFOSFAMIDE
     Indication: Lymphoma
     Dosage: 4 MG, QD, DILUTED WITH 500 ML OF 0.9% SODIUM CHLORIDE
     Route: 041
     Dates: start: 20231128, end: 20231201
  2. SODIUM CHLORIDE [Suspect]
     Active Substance: SODIUM CHLORIDE
     Indication: Medication dilution
     Dosage: (0.9%), 500 ML, QD, USED TO DILUTE 4 MG OF IFOSFAMIDE
     Route: 041
     Dates: start: 20231128, end: 20231201
  3. SODIUM CHLORIDE [Suspect]
     Active Substance: SODIUM CHLORIDE
     Dosage: 100 ML, QD, INTRA-PUMP INJECTION, USED TO DILUTE 1.664 G OF GEMCITABINE HYDROCHLORIDE
     Route: 050
     Dates: start: 20231128, end: 20231201
  4. SODIUM CHLORIDE [Suspect]
     Active Substance: SODIUM CHLORIDE
     Dosage: 100 ML, QD, INTRA-PUMP INJECTION, USED TO DILUTE 40 MG OF VINORELBINE TARTRATE
     Route: 050
     Dates: start: 20231128, end: 20231128
  5. GEMCITABINE HYDROCHLORIDE [Suspect]
     Active Substance: GEMCITABINE HYDROCHLORIDE
     Indication: Lymphoma
     Dosage: 1.664 G, QD, INTRA-PUMP INJECTION, DILUTED WITH 100 ML OF 0.9% SODIUM CHLORIDE
     Route: 050
     Dates: start: 20231128, end: 20231201
  6. VINORELBINE TARTRATE [Suspect]
     Active Substance: VINORELBINE TARTRATE
     Indication: Lymphoma
     Dosage: 40 MG, QD, INTRA-PUMP INJECTION, DILUTED WITH 100 ML OF 0.9% SODIUM CHLORIDE
     Route: 050
     Dates: start: 20231128, end: 20231128

REACTIONS (2)
  - Myelosuppression [Recovering/Resolving]
  - Platelet count decreased [Unknown]

NARRATIVE: CASE EVENT DATE: 20231208
